FAERS Safety Report 25355679 (Version 1)
Quarter: 2025Q2

REPORT INFORMATION
  Report Type: Spontaneous
  Country: ES (occurrence: ES)
  Receive Date: 20250525
  Receipt Date: 20250525
  Transmission Date: 20250717
  Serious: Yes (Hospitalization, Other)
  Sender: AUROBINDO
  Company Number: ES-AEMPS-1670395

PATIENT
  Age: 66 Year
  Sex: Male
  Weight: 84 kg

DRUGS (6)
  1. TELMISARTAN [Suspect]
     Active Substance: TELMISARTAN
     Indication: Product used for unknown indication
     Dosage: 80 MILLIGRAM, ONCE A DAY [1/24H]
     Route: 065
     Dates: start: 20240617
  2. BISOPROLOL FUMARATE [Suspect]
     Active Substance: BISOPROLOL FUMARATE
     Indication: Product used for unknown indication
     Dosage: 10 MILLIGRAM, ONCE A DAY [1/24H]
     Route: 065
     Dates: start: 20211110
  3. ARCOXIA [Suspect]
     Active Substance: ETORICOXIB
     Indication: Nasopharyngitis
     Dosage: 30 MILLIGRAM, 3 TIMES A DAY [UNA CADA 8 HORAS]
     Route: 048
     Dates: start: 20241117, end: 20241120
  4. TRAZODONE HYDROCHLORIDE [Suspect]
     Active Substance: TRAZODONE HYDROCHLORIDE
     Indication: Product used for unknown indication
     Dosage: 100 MILLIGRAM, ONCE A DAY [1/24H]
     Route: 065
     Dates: start: 20201119
  5. CARBOCYSTEINE\PROMETHAZINE HYDROCHLORIDE [Suspect]
     Active Substance: CARBOCYSTEINE\PROMETHAZINE HYDROCHLORIDE
     Indication: Product used for unknown indication
     Route: 065
     Dates: start: 20241117
  6. Terazosina [Concomitant]
     Indication: Product used for unknown indication
     Dosage: 5 MILLIGRAM, ONCE A DAY [1/24H]
     Route: 065
     Dates: start: 20190617

REACTIONS (3)
  - Melaena [Recovered/Resolved]
  - Abdominal pain [Recovered/Resolved]
  - Malaise [Recovered/Resolved]

NARRATIVE: CASE EVENT DATE: 20241117
